FAERS Safety Report 6563009-8 (Version None)
Quarter: 2010Q1

REPORT INFORMATION
  Report Type: 
  Country: None (occurrence: None)
  Receive Date: 20100130
  Receipt Date: 20091130
  Transmission Date: 20100710
  Serious: No
  Sender: FDA-Public Use
  Company Number: US-ABBOTT-09P-163-0611891-00

PATIENT
  Sex: Male
  Weight: 90.8 kg

DRUGS (4)
  1. HUMIRA [Suspect]
     Indication: ARTHRITIS
     Dosage: WOULD ONLY TAKE EVERY COUPLE OF MONTHS AS NEEDED
     Dates: start: 20081124
  2. HUMIRA [Suspect]
     Indication: ARTHRITIS
     Dosage: WOULD ONLY TAKE EVERY COUPLE OF MONTHS AS NEEDED
     Route: 058
     Dates: start: 20040101, end: 20081124
  3. NAPROSYN [Concomitant]
     Indication: ARTHRALGIA
  4. PLAQUENIL [Concomitant]
     Indication: ARTHRITIS

REACTIONS (5)
  - ARTHRITIS [None]
  - DIZZINESS [None]
  - HEADACHE [None]
  - MEDICATION ERROR [None]
  - POOR QUALITY SLEEP [None]
